FAERS Safety Report 22927986 (Version 11)
Quarter: 2024Q2

REPORT INFORMATION
  Report Type: Report from Study
  Country: US (occurrence: US)
  Receive Date: 20230911
  Receipt Date: 20240614
  Transmission Date: 20240716
  Serious: Yes (Hospitalization, Other)
  Sender: FDA-Public Use
  Company Number: US-ACADIA PHARMACEUTICALS INC.-ACA-2023-TRF-003589

PATIENT
  Age: 12 Year
  Sex: Female

DRUGS (10)
  1. DAYBUE [Suspect]
     Active Substance: TROFINETIDE
     Indication: Rett syndrome
     Dosage: 40 MILLILITER, BID, VIA G TUBE
     Dates: start: 20230727, end: 20231021
  2. DAYBUE [Suspect]
     Active Substance: TROFINETIDE
     Dosage: 15 MILLILITER, BID, VIA G TUBE
     Dates: start: 20231104
  3. DAYBUE [Suspect]
     Active Substance: TROFINETIDE
     Dosage: 30 MILLILITER, BID
  4. DAYBUE [Suspect]
     Active Substance: TROFINETIDE
     Dosage: 25 OR 30 ML BID OR TID
  5. DAYBUE [Suspect]
     Active Substance: TROFINETIDE
     Dosage: 40 MILLILITER, BID
  6. DAYBUE [Suspect]
     Active Substance: TROFINETIDE
     Dosage: 20 MILLILITER BID
  7. DAYBUE [Suspect]
     Active Substance: TROFINETIDE
     Dosage: 40 MILLILITER, BID
     Dates: end: 20240325
  8. DAYBUE [Suspect]
     Active Substance: TROFINETIDE
     Dosage: 15 MILLILITER, BID
  9. DAYBUE [Suspect]
     Active Substance: TROFINETIDE
     Dosage: 30 MILLILITER IN THE AM AND 15ML IN PM
  10. CEFTRIAXONE SODIUM [Suspect]
     Active Substance: CEFTRIAXONE SODIUM
     Dosage: UNK

REACTIONS (24)
  - Endocarditis [Not Recovered/Not Resolved]
  - Staphylococcal infection [Not Recovered/Not Resolved]
  - Disseminated intravascular coagulation [Unknown]
  - Vascular device infection [Unknown]
  - Oesophageal ulcer [Not Recovered/Not Resolved]
  - Vomiting [Not Recovered/Not Resolved]
  - Incorrect dose administered [Unknown]
  - Gastrointestinal disorder [Not Recovered/Not Resolved]
  - Product dose omission issue [Not Recovered/Not Resolved]
  - Ulcer [Unknown]
  - Underdose [Unknown]
  - Asthenia [Unknown]
  - Gastrooesophageal reflux disease [Not Recovered/Not Resolved]
  - Parenteral nutrition [Not Recovered/Not Resolved]
  - Inappropriate schedule of product administration [Not Recovered/Not Resolved]
  - Respiratory tract congestion [Unknown]
  - Gastrointestinal disorder [Unknown]
  - Diarrhoea [Not Recovered/Not Resolved]
  - Vomiting [Not Recovered/Not Resolved]
  - Diarrhoea [Not Recovered/Not Resolved]
  - Diarrhoea [Recovering/Resolving]
  - Vomiting [Not Recovered/Not Resolved]
  - Vomiting [Not Recovered/Not Resolved]
  - Diarrhoea [Not Recovered/Not Resolved]

NARRATIVE: CASE EVENT DATE: 20231104
